FAERS Safety Report 4323436-6 (Version None)
Quarter: 2004Q1

REPORT INFORMATION
  Report Type: 
  Country: None (occurrence: None)
  Receive Date: 20040325
  Receipt Date: 20031024
  Transmission Date: 20041129
  Serious: Yes (Hospitalization)
  Sender: FDA-Public Use
  Company Number: WAES 0310FRA00078

PATIENT
  Age: 81 Year
  Sex: Male

DRUGS (8)
  1. ACENOCOUMAROL [Suspect]
     Indication: AORTIC VALVE REPLACEMENT
     Route: 048
     Dates: end: 20030927
  2. ACETAMINOPHEN AND PROPOXYPHENE HYDROCHLORIDE [Concomitant]
     Route: 048
  3. BECLOMETHASONE DIPROPIONATE [Concomitant]
     Route: 048
  4. CLONAZEPAM [Concomitant]
     Route: 048
  5. FUROSEMIDE [Concomitant]
     Route: 048
  6. VIOXX [Suspect]
     Route: 048
     Dates: start: 20030825, end: 20030927
  7. SPIRONOLACTONE [Concomitant]
     Route: 048
  8. TROXERUTIN [Concomitant]
     Route: 048

REACTIONS (4)
  - DRUG INTERACTION [None]
  - GASTROINTESTINAL ANGIODYSPLASIA [None]
  - HYPOPROTHROMBINAEMIA [None]
  - RECTAL HAEMORRHAGE [None]
